FAERS Safety Report 5788840-8 (Version None)
Quarter: 2008Q2

REPORT INFORMATION
  Report Type: 
  Country: None (occurrence: None)
  Receive Date: 20080626
  Receipt Date: 20080618
  Transmission Date: 20081010
  Serious: Yes (Other)
  Sender: FDA-Public Use
  Company Number: US-WYE-H04601908

PATIENT

DRUGS (3)
  1. PROTONIX [Suspect]
     Dosage: UNKNOWN
  2. ZOLPIDEM TARTRATE [Interacting]
     Dosage: 12.5 MG , PRN
     Route: 048
  3. AMBIEN [Concomitant]

REACTIONS (2)
  - DRUG INTERACTION [None]
  - LOSS OF CONSCIOUSNESS [None]
